FAERS Safety Report 5211340-0 (Version None)
Quarter: 2007Q1

REPORT INFORMATION
  Report Type: 
  Country: None (occurrence: None)
  Receive Date: 20070111
  Receipt Date: 20070102
  Transmission Date: 20070707
  Serious: No
  Sender: FDA-Public Use
  Company Number: 233847

PATIENT
  Age: 58 Year
  Sex: Female
  Weight: 166 kg

DRUGS (8)
  1. AVASTIN [Suspect]
     Indication: BREAST CANCER
     Dosage: 800 MG, Q2W, INTRAVENOUS
     Route: 042
     Dates: start: 20061117, end: 20061204
  2. TAXOL [Concomitant]
  3. ZOMETA [Concomitant]
  4. PROCRIT [Concomitant]
  5. BENADRYL [Concomitant]
  6. DEXAMETHASONE TAB [Concomitant]
  7. ZOFRAN [Concomitant]
  8. DIOVAN [Concomitant]

REACTIONS (3)
  - PAIN OF SKIN [None]
  - RASH ERYTHEMATOUS [None]
  - URTICARIA [None]
